FAERS Safety Report 5488184-8 (Version None)
Quarter: 2007Q3

REPORT INFORMATION
  Report Type: 
  Country: None (occurrence: None)
  Receive Date: 20070926
  Receipt Date: 20070716
  Transmission Date: 20080115
  Serious: No
  Sender: FDA-Public Use
  Company Number: HQWYE086517JUL07

PATIENT
  Age: 58 Year
  Sex: Female
  Weight: 56.75 kg

DRUGS (1)
  1. TORISEL [Suspect]
     Indication: RENAL CELL CARCINOMA STAGE UNSPECIFIED
     Dosage: 30 MG, INTRAVENOUS DRIP
     Route: 041
     Dates: start: 20070713

REACTIONS (5)
  - ACCIDENTAL OVERDOSE [None]
  - ASTHENIA [None]
  - INCORRECT DOSE ADMINISTERED [None]
  - LIP SWELLING [None]
  - OEDEMA PERIPHERAL [None]
